FAERS Safety Report 7361081-9 (Version None)
Quarter: 2011Q1

REPORT INFORMATION
  Report Type: 
  Country: None (occurrence: None)
  Receive Date: 20110318
  Receipt Date: 20110129
  Transmission Date: 20110831
  Serious: No
  Sender: FDA-Public Use
  Company Number: US-BAYER-2011-013281

PATIENT
  Sex: Male

DRUGS (1)
  1. ALEVE (CAPLET) [Suspect]
     Indication: PRODUCT USED FOR UNKNOWN INDICATION
     Dosage: CONSUMER REPORTED TAKING 1 ALEVE, WAITED A 1/2 HOUR AND THEN TOOK ANOTHER ALEVE
     Dates: start: 20110125, end: 20110125

REACTIONS (1)
  - DRUG INEFFECTIVE [None]
